FAERS Safety Report 11634109 (Version 2)
Quarter: 2015Q4

REPORT INFORMATION
  Report Type: Other
  Country: TR (occurrence: TR)
  Receive Date: 20151015
  Receipt Date: 20151016
  Transmission Date: 20160304
  Serious: Yes (Hospitalization)
  Sender: FDA-Public Use
  Company Number: TR-EMD SERONO-8047055

PATIENT
  Age: 32 Year
  Sex: Female

DRUGS (1)
  1. FOLLITROPIN ALFA [Suspect]
     Active Substance: FOLLITROPIN
     Indication: OVULATION INDUCTION

REACTIONS (1)
  - Ectopic pregnancy [Recovered/Resolved]
